FAERS Safety Report 10735592 (Version 1)
Quarter: 2015Q1

REPORT INFORMATION
  Report Type: Spontaneous
  Country: US (occurrence: US)
  Receive Date: 20150126
  Receipt Date: 20150126
  Transmission Date: 20150721
  Serious: Yes (Hospitalization)
  Sender: FDA-Public Use
  Company Number: US-JNJFOC-20150108362

PATIENT
  Age: 62 Year
  Sex: Female

DRUGS (2)
  1. TYLENOL ARTHRITIS PAIN [Suspect]
     Active Substance: ACETAMINOPHEN
     Route: 048
  2. TYLENOL ARTHRITIS PAIN [Suspect]
     Active Substance: ACETAMINOPHEN
     Indication: PRODUCT USED FOR UNKNOWN INDICATION
     Dosage: 40 TABS BETWEEN FRIDAY AND SATURDAY
     Route: 048
     Dates: start: 20050805, end: 20050806

REACTIONS (4)
  - Coagulopathy [Unknown]
  - Intentional overdose [Unknown]
  - Prothrombin time prolonged [Unknown]
  - Transaminases increased [Unknown]

NARRATIVE: CASE EVENT DATE: 20050808
